FAERS Safety Report 15850275 (Version 1)
Quarter: 2019Q1

REPORT INFORMATION
  Report Type: Spontaneous
  Country: US (occurrence: US)
  Receive Date: 20190121
  Receipt Date: 20190121
  Transmission Date: 20190417
  Serious: No
  Sender: FDA-Public Use
  Company Number: US-PFIZER INC-2019026498

PATIENT
  Age: 12 Year
  Sex: Male

DRUGS (2)
  1. GENOTROPIN [Suspect]
     Active Substance: SOMATROPIN
     Dosage: ALTERNATE DAY (0.9MG WITH 0.8MG EVERY OTHER DAY, 7 DAYS A WEEK)
  2. GENOTROPIN [Suspect]
     Active Substance: SOMATROPIN
     Dosage: ALTERNATE DAY (0.9MG WITH 0.8MG EVERY OTHER DAY, 7 DAYS A WEEK)

REACTIONS (2)
  - Insulin-like growth factor increased [Unknown]
  - Carbon dioxide increased [Unknown]
